FAERS Safety Report 18456936 (Version 2)
Quarter: 2020Q4

REPORT INFORMATION
  Report Type: Spontaneous
  Country: NL (occurrence: NL)
  Receive Date: 20201103
  Receipt Date: 20201103
  Transmission Date: 20210114
  Serious: Yes (Life-Threatening, Hospitalization)
  Sender: FDA-Public Use
  Company Number: NL-PURACAP PHARMACEUTICAL LLC-2020EPC00341

PATIENT
  Age: 26 Year
  Sex: Female

DRUGS (1)
  1. AMLODIPINE [Suspect]
     Active Substance: AMLODIPINE BESYLATE
     Dosage: 60-10 MG ^PILLS^, ONCE
     Route: 048

REACTIONS (2)
  - Distributive shock [Recovering/Resolving]
  - Intentional overdose [Recovering/Resolving]
